FAERS Safety Report 12829284 (Version 2)
Quarter: 2019Q4

REPORT INFORMATION
  Report Type: Report from Study
  Country: US (occurrence: US)
  Receive Date: 20161007
  Receipt Date: 20191202
  Transmission Date: 20200122
  Serious: Yes (Hospitalization, Disabling, Other)
  Sender: FDA-Public Use
  Company Number: US-SA-2016SA022277

PATIENT
  Age: 58 Year
  Sex: Female

DRUGS (21)
  1. TERIFLUNOMIDE. [Suspect]
     Active Substance: TERIFLUNOMIDE
     Dosage: 14 MG,QD
     Route: 048
     Dates: start: 20140416
  2. ADVAIR HFA [Concomitant]
     Active Substance: FLUTICASONE PROPIONATE\SALMETEROL XINAFOATE
     Dosage: DISKU AER 100/50
  3. BACLOFEN. [Concomitant]
     Active Substance: BACLOFEN
     Dosage: 20 MG,UNK
  4. GABAPENTIN. [Concomitant]
     Active Substance: GABAPENTIN
     Dosage: 300 MG,UNK
  5. TERIFLUNOMIDE. [Suspect]
     Active Substance: TERIFLUNOMIDE
     Dosage: 14 MG,QD
     Route: 048
     Dates: start: 20140903
  6. HYDROXYCHLOROQUINE PHOSPHATE [Concomitant]
     Active Substance: HYDROXYCHLOROQUINE DIPHOSPHATE
     Dosage: 200 MG,UNK
  7. FOLIC ACID. [Concomitant]
     Active Substance: FOLIC ACID
     Dosage: 1 MG,UNK
  8. DULOXETINE. [Concomitant]
     Active Substance: DULOXETINE
     Dosage: 60 MG,UNK
  9. VENTOLIN [Concomitant]
     Active Substance: ALBUTEROL SULFATE
     Dosage: HFA AER
  10. LEVOFLOXACIN. [Concomitant]
     Active Substance: LEVOFLOXACIN
     Dosage: 750 MG,UNK
  11. DIAZEPAM. [Concomitant]
     Active Substance: DIAZEPAM
     Dosage: 10 MG,UNK
  12. TERIFLUNOMIDE. [Suspect]
     Active Substance: TERIFLUNOMIDE
     Indication: MULTIPLE SCLEROSIS
     Dosage: 14 MG,QD
     Route: 048
     Dates: start: 20120421
  13. HYDROXYCHLOROQUINE [Concomitant]
     Active Substance: HYDROXYCHLOROQUINE
     Dosage: 200 MG,UNK
  14. AZITHROMYCIN ANHYDROUS. [Concomitant]
     Active Substance: AZITHROMYCIN ANHYDROUS
     Dosage: 250 MG,UNK
  15. LEVOFLOXACIN. [Concomitant]
     Active Substance: LEVOFLOXACIN
     Dosage: 750 MG,UNK
  16. METHOTREXATE. [Concomitant]
     Active Substance: METHOTREXATE
     Dosage: 2.5 MG,UNK
  17. TERIFLUNOMIDE. [Suspect]
     Active Substance: TERIFLUNOMIDE
     Dosage: 14 MG, QD
     Route: 048
     Dates: start: 20190130
  18. PROCHLORPERAZINE. [Concomitant]
     Active Substance: PROCHLORPERAZINE
     Dosage: 5 MG,UNK
  19. METHYLPRED [Concomitant]
     Active Substance: METHYLPREDNISOLONE
     Dosage: 4 MG,UNK
  20. NAPROXEN. [Concomitant]
     Active Substance: NAPROXEN
     Dosage: 500 MG,UNK
  21. TRAMADOL HYDROCHLORIDE. [Concomitant]
     Active Substance: TRAMADOL HYDROCHLORIDE
     Dosage: 50 MG,UNK

REACTIONS (13)
  - Gait disturbance [Not Recovered/Not Resolved]
  - Peripheral swelling [Recovered/Resolved]
  - Condition aggravated [Not Recovered/Not Resolved]
  - Vertigo [Not Recovered/Not Resolved]
  - Fall [Recovered/Resolved]
  - Seizure [Unknown]
  - Multiple sclerosis relapse [Recovering/Resolving]
  - Spinal stenosis [Not Recovered/Not Resolved]
  - Fatigue [Unknown]
  - Skin abrasion [Recovered/Resolved]
  - Condition aggravated [Not Recovered/Not Resolved]
  - Spinal operation [Recovered/Resolved]
  - Balance disorder [Not Recovered/Not Resolved]

NARRATIVE: CASE EVENT DATE: 2012
